FAERS Safety Report 21209817 (Version 5)
Quarter: 2022Q3

REPORT INFORMATION
  Report Type: Spontaneous
  Country: US (occurrence: US)
  Receive Date: 20220813
  Receipt Date: 20220903
  Transmission Date: 20221026
  Serious: Yes (Death, Hospitalization, Other)
  Sender: FDA-Public Use
  Company Number: US-UNITED THERAPEUTICS-UNT-2022-018264

PATIENT
  Age: 67 Year
  Sex: Female
  Weight: 59.41 kg

DRUGS (3)
  1. TYVASO [Suspect]
     Active Substance: TREPROSTINIL
     Indication: Pulmonary arterial hypertension
     Dosage: UNK
     Dates: start: 20220519
  2. TYVASO [Suspect]
     Active Substance: TREPROSTINIL
     Dosage: 72 ?G, QID
     Dates: start: 2022
  3. TYVASO [Suspect]
     Active Substance: TREPROSTINIL
     Dosage: 54 ?G, QID
     Dates: start: 2022

REACTIONS (16)
  - Cardiogenic shock [Fatal]
  - Interstitial lung disease [Fatal]
  - Hypoxia [Fatal]
  - Spinal compression fracture [Unknown]
  - Unresponsive to stimuli [Unknown]
  - Respiratory distress [Unknown]
  - Respiratory failure [Unknown]
  - Hyperkalaemia [Unknown]
  - Right ventricular failure [Unknown]
  - Acute kidney injury [Unknown]
  - Shock [Unknown]
  - Fall [Recovered/Resolved with Sequelae]
  - Back injury [Unknown]
  - Asthenia [Unknown]
  - Mental status changes [Unknown]
  - Pleural effusion [Unknown]

NARRATIVE: CASE EVENT DATE: 20220801
